FAERS Safety Report 8588083-9 (Version None)
Quarter: 2012Q3

REPORT INFORMATION
  Report Type: 
  Country: None (occurrence: None)
  Receive Date: 20120813
  Receipt Date: 20120810
  Transmission Date: 20120928
  Serious: No
  Sender: FDA-Public Use
  Company Number: US-PFIZER INC-2012196011

PATIENT
  Age: 32 Year
  Sex: Female
  Weight: 61.224 kg

DRUGS (2)
  1. CHANTIX [Suspect]
     Indication: SMOKING CESSATION THERAPY
     Dosage: 0.5 MG, DAILY
     Route: 048
     Dates: start: 20120807
  2. AVIL [Concomitant]
     Dosage: 100 MG, 2X/DAY

REACTIONS (2)
  - MOOD ALTERED [None]
  - ABNORMAL DREAMS [None]
